FAERS Safety Report 16663367 (Version 1)
Quarter: 2019Q3

REPORT INFORMATION
  Report Type: Report from Study
  Country: US (occurrence: US)
  Receive Date: 20190802
  Receipt Date: 20190802
  Transmission Date: 20191004
  Serious: No
  Sender: FDA-Public Use
  Company Number: US-EXELIXIS-CABO-19021183

PATIENT
  Age: 62 Year
  Sex: Male

DRUGS (21)
  1. COMETRIQ [Suspect]
     Active Substance: CABOZANTINIB S-MALATE
     Dosage: 100 MG, QD
     Route: 048
     Dates: start: 201612
  2. ATORVASTATIN [Concomitant]
     Active Substance: ATORVASTATIN
  3. COLACE [Concomitant]
     Active Substance: DOCUSATE SODIUM
  4. LEVOTHYROXINE. [Concomitant]
     Active Substance: LEVOTHYROXINE
  5. DOXYCYCLINE HYCLATE. [Concomitant]
     Active Substance: DOXYCYCLINE HYCLATE
  6. GABAPENTIN. [Concomitant]
     Active Substance: GABAPENTIN
  7. PERCOCET [Concomitant]
     Active Substance: ACETAMINOPHEN\OXYCODONE HYDROCHLORIDE
  8. LEVEMIR [Concomitant]
     Active Substance: INSULIN DETEMIR
  9. OMEPRAZOLE. [Concomitant]
     Active Substance: OMEPRAZOLE
  10. METHYLPHENIDATE. [Concomitant]
     Active Substance: METHYLPHENIDATE
  11. CIALIS [Concomitant]
     Active Substance: TADALAFIL
  12. HUMALOG [Concomitant]
     Active Substance: INSULIN LISPRO
  13. OXYCODONE [Concomitant]
     Active Substance: OXYCODONE
  14. SENNA [Concomitant]
     Active Substance: SENNA LEAF\SENNOSIDES\SENNOSIDES A AND B
  15. COMETRIQ [Suspect]
     Active Substance: CABOZANTINIB S-MALATE
     Indication: THYROID CANCER
     Dosage: 140 MG, QD
     Route: 048
     Dates: start: 20160915, end: 20161026
  16. ASPIRIN. [Concomitant]
     Active Substance: ASPIRIN
  17. TRAZODONE [Concomitant]
     Active Substance: TRAZODONE HYDROCHLORIDE
  18. MELOXICAM. [Concomitant]
     Active Substance: MELOXICAM
  19. CLOBETASOL [Concomitant]
     Active Substance: CLOBETASOL
  20. METFORMIN [Concomitant]
     Active Substance: METFORMIN HYDROCHLORIDE
  21. ONDANSETRON [Concomitant]
     Active Substance: ONDANSETRON

REACTIONS (1)
  - Blood pressure decreased [Unknown]

NARRATIVE: CASE EVENT DATE: 20190508
